FAERS Safety Report 11168750 (Version 2)
Quarter: 2015Q2

REPORT INFORMATION
  Report Type: Report from Study
  Country: US (occurrence: US)
  Receive Date: 20150605
  Receipt Date: 20150618
  Transmission Date: 20150821
  Serious: Yes (Other)
  Sender: FDA-Public Use
  Company Number: US-AMGEN-USASL2015052987

PATIENT
  Age: 14 Year
  Sex: Female
  Weight: 42 kg

DRUGS (6)
  1. LEUCOVORIN                         /00566701/ [Concomitant]
     Active Substance: LEUCOVORIN
     Indication: NAUSEA
     Dosage: 05 MG, QWK
     Route: 048
  2. ENBREL [Suspect]
     Active Substance: ETANERCEPT
     Indication: JUVENILE IDIOPATHIC ARTHRITIS
  3. LEVOTHYROXINE [Concomitant]
     Active Substance: LEVOTHYROXINE
     Indication: HYPOTHYROIDISM
     Dosage: 100 MG, QD
     Route: 048
  4. FOLIC ACID. [Concomitant]
     Active Substance: FOLIC ACID
     Dosage: 1 MG, QD
     Route: 048
  5. ENBREL [Suspect]
     Active Substance: ETANERCEPT
     Indication: RHEUMATOID ARTHRITIS
     Dosage: 15 MG, 2 TIMES/WK
     Route: 058
     Dates: start: 20090910
  6. METHOTREXATE [Concomitant]
     Active Substance: METHOTREXATE
     Indication: JUVENILE IDIOPATHIC ARTHRITIS
     Dosage: 20 MG, QWK
     Route: 058
     Dates: start: 20090910

REACTIONS (5)
  - Nasopharyngitis [Recovered/Resolved]
  - Animal bite [Not Recovered/Not Resolved]
  - Infected bites [Not Recovered/Not Resolved]
  - Wound infection [Not Recovered/Not Resolved]
  - Animal scratch [Not Recovered/Not Resolved]

NARRATIVE: CASE EVENT DATE: 201505
